FAERS Safety Report 9272032 (Version 2)
Quarter: 2013Q2

REPORT INFORMATION
  Report Type: Spontaneous
  Country: US (occurrence: US)
  Receive Date: 20130506
  Receipt Date: 20130607
  Transmission Date: 20140414
  Serious: No
  Sender: FDA-Public Use
  Company Number: US-009507513-1305USA002197

PATIENT
  Age: 61 Year
  Sex: Female

DRUGS (4)
  1. CLARITIN REDITABS [Suspect]
     Indication: HYPERSENSITIVITY
     Dosage: 20 MG, UNKNOWN
     Route: 048
     Dates: start: 20130427
  2. CLARITIN REDITABS [Suspect]
     Indication: PRODUCT USED FOR UNKNOWN INDICATION
  3. CLARITIN REDITABS [Suspect]
     Indication: MEDICAL OBSERVATION
  4. INSULIN [Concomitant]
     Indication: DIABETES MELLITUS
     Dosage: UNK, UNKNOWN

REACTIONS (2)
  - Drug ineffective [Unknown]
  - Overdose [Unknown]
